FAERS Safety Report 20065312 (Version 1)
Quarter: 2021Q4

REPORT INFORMATION
  Report Type: Spontaneous
  Country: RS (occurrence: RS)
  Receive Date: 20211113
  Receipt Date: 20211113
  Transmission Date: 20220303
  Serious: Yes (Death, Hospitalization)
  Sender: FDA-Public Use
  Company Number: RS-JNJFOC-20210667291

PATIENT
  Age: 62 Year
  Sex: Female

DRUGS (1)
  1. IMBRUVICA [Suspect]
     Active Substance: IBRUTINIB
     Indication: Chronic lymphocytic leukaemia
     Route: 048
     Dates: start: 201904

REACTIONS (5)
  - Chronic lymphocytic leukaemia [Fatal]
  - Selective IgA immunodeficiency [Unknown]
  - Leukocytosis [Unknown]
  - Infection [Recovered/Resolved]
  - Contusion [Unknown]
